FAERS Safety Report 22108914 (Version 1)
Quarter: 2023Q1

REPORT INFORMATION
  Report Type: Spontaneous
  Country: FR (occurrence: FR)
  Receive Date: 20230317
  Receipt Date: 20230317
  Transmission Date: 20230418
  Serious: Yes (Other)
  Sender: FDA-Public Use
  Company Number: None

PATIENT
  Age: 76 Year
  Sex: Female

DRUGS (3)
  1. TAMOXIFEN CITRATE [Suspect]
     Active Substance: TAMOXIFEN CITRATE
     Indication: Intraductal proliferative breast lesion
     Route: 065
     Dates: end: 2009
  2. CARBOPLATIN [Suspect]
     Active Substance: CARBOPLATIN
     Indication: Uterine cancer
     Dosage: ACCORDING TO PROTOCOL
     Route: 065
     Dates: start: 2022, end: 20220808
  3. PACLITAXEL [Suspect]
     Active Substance: PACLITAXEL
     Indication: Uterine cancer
     Dosage: ACCORDING TO PROTOCOL
     Route: 065
     Dates: start: 2022, end: 20220808

REACTIONS (1)
  - Ventricular dysfunction [Not Recovered/Not Resolved]

NARRATIVE: CASE EVENT DATE: 20230109
